FAERS Safety Report 5720498-6 (Version None)
Quarter: 2008Q2

REPORT INFORMATION
  Report Type: 
  Country: None (occurrence: None)
  Receive Date: 20080423
  Receipt Date: 20080220
  Transmission Date: 20081010
  Serious: Yes (Life-Threatening)
  Sender: FDA-Public Use
  Company Number: 254293

PATIENT
  Age: 65 Year
  Sex: Male
  Weight: 68.5 kg

DRUGS (3)
  1. AVASTIN [Suspect]
     Indication: HEAD AND NECK CANCER
     Dosage: 720 MG, Q2W, INTRAVENOUS
     Route: 042
     Dates: start: 20071104, end: 20080107
  2. PREDNISONE TAB [Concomitant]
  3. NARCOTICS (NARCOTIC NOS) [Concomitant]

REACTIONS (1)
  - DIVERTICULAR PERFORATION [None]
